FAERS Safety Report 4830780-2 (Version None)
Quarter: 2005Q4

REPORT INFORMATION
  Report Type: 
  Country: None (occurrence: None)
  Receive Date: 20051117
  Receipt Date: 20051110
  Transmission Date: 20060501
  Serious: Yes (Hospitalization)
  Sender: FDA-Public Use
  Company Number: FR-MERCK-0511FRA00033

PATIENT
  Age: 76 Year
  Sex: Female
  Weight: 92 kg

DRUGS (16)
  1. VALSARTAN [Concomitant]
     Indication: HYPERTENSION
     Route: 048
  2. DILTIAZEM MALATE [Concomitant]
     Indication: HYPERTENSION
     Route: 065
  3. RABEPRAZOLE SODIUM [Concomitant]
     Route: 048
  4. GLIMEPIRIDE [Concomitant]
     Indication: DIABETES MELLITUS
     Route: 048
  5. BAMBUTEROL [Concomitant]
     Indication: ASTHMA
     Route: 048
  6. LORATADINE [Concomitant]
     Indication: HYPERSENSITIVITY
     Route: 048
  7. ATORVASTATIN CALCIUM [Concomitant]
     Indication: HYPERCHOLESTEROLAEMIA
     Route: 048
  8. RAMIPRIL [Concomitant]
     Indication: HYPERTENSION
     Route: 048
  9. AGGRASTAT [Suspect]
     Indication: ACUTE CORONARY SYNDROME
     Route: 065
     Dates: start: 20051011, end: 20051011
  10. AGGRASTAT [Suspect]
     Route: 065
     Dates: start: 20051011, end: 20051012
  11. ENOXAPARIN SODIUM [Suspect]
     Indication: ACUTE CORONARY SYNDROME
     Route: 058
     Dates: start: 20051016
  12. ASPIRIN [Suspect]
     Indication: ACUTE CORONARY SYNDROME
     Route: 048
     Dates: start: 20051011
  13. CLOPIDOGREL BISULFATE [Suspect]
     Indication: ACUTE CORONARY SYNDROME
     Route: 048
     Dates: start: 20051011
  14. NADROPARIN [Suspect]
     Indication: ACUTE CORONARY SYNDROME
     Route: 058
     Dates: start: 20051011, end: 20051016
  15. SINGULAIR [Concomitant]
     Indication: ASTHMA
     Route: 048
  16. FUROSEMIDE [Concomitant]
     Route: 048

REACTIONS (5)
  - ABSCESS [None]
  - ANAEMIA [None]
  - CELLULITIS [None]
  - HAEMATOMA [None]
  - PYREXIA [None]
